FAERS Safety Report 21227622 (Version 2)
Quarter: 2022Q3

REPORT INFORMATION
  Report Type: Spontaneous
  Country: US (occurrence: US)
  Receive Date: 20220818
  Receipt Date: 20220905
  Transmission Date: 20221027
  Serious: No
  Sender: FDA-Public Use
  Company Number: US-AMGEN-USASP2022137630

PATIENT
  Age: 69 Year
  Sex: Male
  Weight: 120.18 kg

DRUGS (5)
  1. REPATHA [Suspect]
     Active Substance: EVOLOCUMAB
     Indication: Hyperlipidaemia
     Dosage: UNK
     Route: 065
     Dates: start: 20220404
  2. AZITHROMYCIN [Concomitant]
     Active Substance: AZITHROMYCIN
     Dosage: 500 MILLIGRAM, QD
     Route: 048
     Dates: start: 20220809, end: 20220814
  3. FLUCONAZOLE [Concomitant]
     Active Substance: FLUCONAZOLE
     Dosage: 100 MILLIGRAM, QD
     Dates: start: 20220809, end: 20220819
  4. POTASSIUM CHLORIDE [Concomitant]
     Active Substance: POTASSIUM CHLORIDE
     Dosage: UNK UNK, QD
     Dates: start: 20220809
  5. TORSEMIDE [Concomitant]
     Active Substance: TORSEMIDE
     Indication: Oedema
     Dosage: 20 MILLIGRAM, QD
     Route: 048
     Dates: start: 20220809

REACTIONS (3)
  - Device difficult to use [Unknown]
  - Underdose [Unknown]
  - Oedema [Unknown]

NARRATIVE: CASE EVENT DATE: 20220809
